FAERS Safety Report 9922400 (Version 1)
Quarter: 2014Q1

REPORT INFORMATION
  Report Type: Spontaneous
  Country: US (occurrence: None)
  Receive Date: 20140224
  Receipt Date: 20140224
  Transmission Date: 20141002
  Serious: Yes (Life-Threatening, Hospitalization)
  Sender: FDA-Public Use
  Company Number: None

PATIENT
  Age: 33 Year
  Sex: Female
  Weight: 70.31 kg

DRUGS (1)
  1. ZOFRAN [Suspect]
     Dosage: IN THE OR INTO A VEIN
     Dates: start: 20110912

REACTIONS (5)
  - Diarrhoea [None]
  - Serotonin syndrome [None]
  - Drug hypersensitivity [None]
  - Documented hypersensitivity to administered drug [None]
  - Muscle contracture [None]
